FAERS Safety Report 16345360 (Version 2)
Quarter: 2019Q2

REPORT INFORMATION
  Report Type: Spontaneous
  Country: US (occurrence: US)
  Receive Date: 20190523
  Receipt Date: 20190528
  Transmission Date: 20190711
  Serious: Yes (Death, Other)
  Sender: FDA-Public Use
  Company Number: US-ROCHE-2322760

PATIENT
  Sex: Male

DRUGS (1)
  1. ESBRIET [Suspect]
     Active Substance: PIRFENIDONE
     Indication: IDIOPATHIC PULMONARY FIBROSIS
     Dosage: 267 X 3,  AS DIRECTED.
     Route: 048
     Dates: start: 20190212

REACTIONS (3)
  - Death [Fatal]
  - Myocardial infarction [Unknown]
  - Bacterial infection [Unknown]
